FAERS Safety Report 14155996 (Version 2)
Quarter: 2018Q1

REPORT INFORMATION
  Report Type: Spontaneous
  Country: RU (occurrence: RU)
  Receive Date: 20171103
  Receipt Date: 20180216
  Transmission Date: 20180508
  Serious: Yes (Other)
  Sender: FDA-Public Use
  Company Number: RU-ASTRAZENECA-2017SF11180

PATIENT
  Age: 70 Year
  Sex: Male
  Weight: 87 kg

DRUGS (8)
  1. LIPRIMAR [Concomitant]
     Active Substance: ATORVASTATIN CALCIUM
  2. THROMBO ASS [Concomitant]
     Active Substance: ASPIRIN
  3. NOLPAZA [Concomitant]
     Active Substance: PANTOPRAZOLE SODIUM
  4. BRILINTA [Suspect]
     Active Substance: TICAGRELOR
     Indication: MYOCARDIAL INFARCTION
     Route: 048
     Dates: start: 201702
  5. BETALOC ZOK [Concomitant]
     Active Substance: METOPROLOL SUCCINATE
  6. PREDUCTAL [Concomitant]
     Active Substance: TRIMETAZIDINE DIHYDROCHLORIDE
  7. EPLERENONE. [Concomitant]
     Active Substance: EPLERENONE
  8. CORDARONE [Concomitant]
     Active Substance: AMIODARONE HYDROCHLORIDE

REACTIONS (5)
  - Bronchitis [Not Recovered/Not Resolved]
  - Off label use [Not Recovered/Not Resolved]
  - Respiratory tract infection viral [Not Recovered/Not Resolved]
  - Sinusitis [Not Recovered/Not Resolved]
  - Product prescribing issue [Unknown]

NARRATIVE: CASE EVENT DATE: 20171010
